FAERS Safety Report 8047702-6 (Version None)
Quarter: 2012Q1

REPORT INFORMATION
  Report Type: 
  Country: None (occurrence: None)
  Receive Date: 20120116
  Receipt Date: 20120106
  Transmission Date: 20120608
  Serious: Yes (Hospitalization)
  Sender: FDA-Public Use
  Company Number: US-JNJFOC-20111209051

PATIENT
  Sex: Female
  Weight: 42 kg

DRUGS (10)
  1. MERCAPTOPURINE [Concomitant]
  2. NEXIUM [Concomitant]
  3. HUMIRA [Concomitant]
     Dates: start: 20110827
  4. FOLIC ACID [Concomitant]
  5. ZOFRAN [Concomitant]
  6. TYLENOL W/ CODEINE [Concomitant]
  7. CHOLECALCIFEROL [Concomitant]
  8. REMICADE [Suspect]
     Indication: INFLAMMATORY BOWEL DISEASE
     Route: 042
  9. ANTIBIOTICS [Concomitant]
     Indication: INFLAMMATORY BOWEL DISEASE
  10. AMITRIPTYLINE HCL [Concomitant]

REACTIONS (1)
  - CROHN'S DISEASE [None]
